FAERS Safety Report 24954592 (Version 1)
Quarter: 2025Q1

REPORT INFORMATION
  Report Type: Spontaneous
  Country: US (occurrence: US)
  Receive Date: 20250211
  Receipt Date: 20250211
  Transmission Date: 20250409
  Serious: Yes (Other)
  Sender: MYLAN
  Company Number: US-MYLANLABS-2025M1011308

PATIENT
  Age: 72 Year
  Sex: Female

DRUGS (4)
  1. GEMCITABINE [Suspect]
     Active Substance: GEMCITABINE
     Indication: Cholangiocarcinoma
     Route: 065
  2. CAPECITABINE [Suspect]
     Active Substance: CAPECITABINE
     Indication: Cholangiocarcinoma
     Route: 065
  3. CISPLATIN [Suspect]
     Active Substance: CISPLATIN
     Indication: Cholangiocarcinoma
     Route: 065
  4. PEMIGATINIB [Concomitant]
     Active Substance: PEMIGATINIB
     Indication: Cholangiocarcinoma
     Route: 048

REACTIONS (2)
  - Drug ineffective [Unknown]
  - Disease progression [Unknown]
